FAERS Safety Report 10461271 (Version 1)
Quarter: 2014Q3

REPORT INFORMATION
  Report Type: Spontaneous
  Country: US (occurrence: None)
  Receive Date: 20140917
  Receipt Date: 20140917
  Transmission Date: 20150326
  Serious: Yes (Other)
  Sender: FDA-Public Use
  Company Number: None

PATIENT
  Age: 56 Year
  Sex: Female

DRUGS (5)
  1. MULTI-VITAMIN [Concomitant]
     Active Substance: .ALPHA.-TOCOPHEROL ACETATE, DL-\ASCORBIC ACID\CYANOCOBALAMIN\FLUORIDE ION\FOLIC ACID\NIACIN\PYRIDOXINE\RIBOFLAVIN\THIAMINE\VITAMIN A\VITAMIN D
  2. RISPERIDONE. [Concomitant]
     Active Substance: RISPERIDONE
  3. CLOZONEPAM [Concomitant]
  4. BUSPENINE [Concomitant]
  5. DEPAKOTE [Suspect]
     Active Substance: DIVALPROEX SODIUM
     Indication: BIPOLAR DISORDER
     Dosage: 1500 ?3 PILLS ?ONCE NIGHTY?MOUTH??THERAPY?10 YEARS AGO- STILL ON
     Route: 048

REACTIONS (1)
  - Chronic lymphocytic leukaemia [None]

NARRATIVE: CASE EVENT DATE: 201410
